FAERS Safety Report 5199208-X (Version None)
Quarter: 2007Q1

REPORT INFORMATION
  Report Type: 
  Country: None (occurrence: None)
  Receive Date: 20070104
  Receipt Date: 20061225
  Transmission Date: 20070707
  Serious: Yes (Death, Other)
  Sender: FDA-Public Use
  Company Number: JP-PFIZER INC-2006148881

PATIENT
  Sex: Male

DRUGS (12)
  1. ZYVOX [Suspect]
     Indication: LUNG ABSCESS
     Dosage: DAILY DOSE:1200MG
     Route: 042
     Dates: start: 20061124, end: 20061126
  2. VANCOMYCIN [Suspect]
     Indication: LUNG ABSCESS
     Dosage: DAILY DOSE:1GRAM
     Route: 042
     Dates: start: 20061120, end: 20061123
  3. MIDAZOLAM HYDROCHLORIDE [Concomitant]
     Route: 042
     Dates: start: 20061121, end: 20061220
  4. DILTIAZEM HYDROCHLORIDE [Concomitant]
     Route: 042
     Dates: start: 20061007, end: 20061220
  5. FULCALIQ [Concomitant]
     Route: 042
     Dates: start: 20061123, end: 20061221
  6. PARENTERAL [Concomitant]
  7. FOSMICIN [Concomitant]
     Route: 042
     Dates: start: 20061123, end: 20061124
  8. BACTRIM [Concomitant]
     Route: 048
     Dates: start: 20061020, end: 20061218
  9. HALOPERIDOL [Concomitant]
     Route: 048
     Dates: start: 20061106, end: 20061206
  10. GANATON [Concomitant]
     Route: 048
     Dates: start: 20061121, end: 20061206
  11. EURODIN [Concomitant]
     Route: 048
     Dates: start: 20061109, end: 20061206
  12. LAC B [Concomitant]
     Route: 048
     Dates: start: 20061123, end: 20061218

REACTIONS (2)
  - DRUG ERUPTION [None]
  - RESPIRATORY FAILURE [None]
